FAERS Safety Report 24718844 (Version 1)
Quarter: 2024Q4

REPORT INFORMATION
  Report Type: Spontaneous
  Country: OM (occurrence: OM)
  Receive Date: 20241210
  Receipt Date: 20241210
  Transmission Date: 20250114
  Serious: Yes (Other)
  Sender: RANBAXY
  Company Number: OM-SUN PHARMACEUTICAL INDUSTRIES LTD-2024RR-483623

PATIENT
  Age: 54 Year
  Sex: Male

DRUGS (1)
  1. ASPIRIN [Suspect]
     Active Substance: ASPIRIN
     Indication: Antiplatelet therapy
     Dosage: 100 MILLIGRAM, DAILY
     Route: 048

REACTIONS (4)
  - Therapeutic product effect incomplete [Unknown]
  - Condition aggravated [Recovered/Resolved]
  - Drug intolerance [Unknown]
  - Gastrointestinal disorder [Unknown]
